FAERS Safety Report 5875975-4 (Version None)
Quarter: 2008Q3

REPORT INFORMATION
  Report Type: 
  Country: None (occurrence: None)
  Receive Date: 20080905
  Receipt Date: 20080822
  Transmission Date: 20090109
  Serious: Yes (Life-Threatening)
  Sender: FDA-Public Use
  Company Number: 94695

PATIENT
  Sex: 0

DRUGS (1)
  1. IBUPROFEN SUSPENSION [Suspect]
     Indication: PATENT DUCTUS ARTERIOSUS
     Dosage: 24 HOUR INTERVAL DOSING/ ORAL
     Route: 048

REACTIONS (1)
  - RENAL IMPAIRMENT [None]
